FAERS Safety Report 5284969-1 (Version None)
Quarter: 2007Q2

REPORT INFORMATION
  Report Type: 
  Country: None (occurrence: None)
  Receive Date: 20070403
  Receipt Date: 20060804
  Transmission Date: 20071010
  Serious: No
  Sender: FDA-Public Use
  Company Number: US-BRISTOL-MYERS SQUIBB COMPANY-13466297

PATIENT
  Sex: Female

DRUGS (1)
  1. WESTCORT [Suspect]
     Indication: SKIN DISORDER
     Route: 061
     Dates: start: 20060206

REACTIONS (1)
  - DRUG INEFFECTIVE [None]
